FAERS Safety Report 17638195 (Version 1)
Quarter: 2020Q2

REPORT INFORMATION
  Report Type: Spontaneous
  Country: US (occurrence: US)
  Receive Date: 20200407
  Receipt Date: 20200407
  Transmission Date: 20200713
  Serious: Yes (Other)
  Sender: FDA-Public Use
  Company Number: US-MYLANLABS-2020M1034959

PATIENT
  Age: 26 Year
  Sex: Male

DRUGS (5)
  1. TRIAMCINOLONE [Suspect]
     Active Substance: TRIAMCINOLONE
     Indication: EXCESSIVE GRANULATION TISSUE
     Dosage: 40MG/ML SOLUTION
     Route: 065
  2. TIMOLOL. [Suspect]
     Active Substance: TIMOLOL
     Indication: EXCESSIVE GRANULATION TISSUE
     Dosage: APPLY SEVERAL DROPS OPHTHALMIC GEL-FORMING SOLUTION
     Route: 061
  3. INFLIXIMAB [Concomitant]
     Active Substance: INFLIXIMAB
     Indication: HIDRADENITIS
     Dosage: 5 MILLIGRAM/KILOGRAM
     Route: 065
  4. CLINDAMYCIN. [Concomitant]
     Active Substance: CLINDAMYCIN
     Indication: HIDRADENITIS
     Dosage: LOTION
     Route: 061
  5. MINOCYCLINE [Concomitant]
     Active Substance: MINOCYCLINE HYDROCHLORIDE
     Indication: HIDRADENITIS
     Dosage: DAILY
     Route: 065

REACTIONS (2)
  - Drug ineffective [Unknown]
  - Off label use [Unknown]
